FAERS Safety Report 6607246-2 (Version None)
Quarter: 2010Q1

REPORT INFORMATION
  Report Type: 
  Country: None (occurrence: None)
  Receive Date: 20100227
  Receipt Date: 20100218
  Transmission Date: 20100710
  Serious: Yes (Hospitalization, Other)
  Sender: FDA-Public Use
  Company Number: JP-JNJFOC-20090904000

PATIENT
  Age: 37 Year
  Sex: Female

DRUGS (3)
  1. RISPERDAL CONSTA [Suspect]
     Indication: SCHIZOPHRENIA
     Route: 030
  2. RISPERDAL CONSTA [Suspect]
     Route: 030
  3. RISPERDAL [Suspect]
     Indication: SCHIZOPHRENIA
     Dosage: MORNING NOON NIGHT
     Route: 048

REACTIONS (15)
  - CONSTIPATION [None]
  - DECREASED ACTIVITY [None]
  - DRUG INEFFECTIVE [None]
  - FATIGUE [None]
  - HALLUCINATION, AUDITORY [None]
  - INAPPROPRIATE AFFECT [None]
  - INSOMNIA [None]
  - MENTAL STATUS CHANGES [None]
  - RESTLESS LEGS SYNDROME [None]
  - SCHIZOPHRENIA [None]
  - SOCIAL AVOIDANT BEHAVIOUR [None]
  - SOMNOLENCE [None]
  - THIRST [None]
  - URINARY INCONTINENCE [None]
  - WEIGHT INCREASED [None]
